FAERS Safety Report 14392639 (Version 13)
Quarter: 2018Q2

REPORT INFORMATION
  Report Type: Spontaneous
  Country: US (occurrence: US)
  Receive Date: 20180116
  Receipt Date: 20180614
  Transmission Date: 20180711
  Serious: Yes (Hospitalization, Other)
  Sender: FDA-Public Use
  Company Number: US-ELI_LILLY_AND_COMPANY-US201801002411

PATIENT
  Age: 71 Year
  Sex: Female

DRUGS (13)
  1. UPTRAVI [Suspect]
     Active Substance: SELEXIPAG
     Indication: PRODUCT USED FOR UNKNOWN INDICATION
     Dosage: UNK, UNKNOWN
     Route: 065
  2. UPTRAVI [Suspect]
     Active Substance: SELEXIPAG
     Dosage: 1400 UG, BID
     Route: 065
     Dates: start: 20180328
  3. ASPIRIN 81 [Concomitant]
     Active Substance: ASPIRIN
     Dosage: UNK, DAILY
  4. AMBRISENTAN [Suspect]
     Active Substance: AMBRISENTAN
     Dosage: 5 MG, DAILY
     Route: 065
  5. COZAAR [Suspect]
     Active Substance: LOSARTAN POTASSIUM
     Indication: PRODUCT USED FOR UNKNOWN INDICATION
     Dosage: UNK, UNKNOWN
     Route: 065
  6. ASPIRIN 81 [Concomitant]
     Active Substance: ASPIRIN
     Indication: PRODUCT USED FOR UNKNOWN INDICATION
     Dosage: UNK, UNKNOWN
  7. ADCIRCA [Suspect]
     Active Substance: TADALAFIL
     Indication: PRODUCT USED FOR UNKNOWN INDICATION
     Dosage: UNK UNK, UNKNOWN
     Route: 065
  8. UPTRAVI [Suspect]
     Active Substance: SELEXIPAG
     Dosage: 1000 UG, UNKNOWN
     Route: 065
     Dates: start: 20180123
  9. POTASSIUM [Concomitant]
     Active Substance: POTASSIUM
     Indication: PRODUCT USED FOR UNKNOWN INDICATION
  10. AMBRISENTAN [Suspect]
     Active Substance: AMBRISENTAN
     Indication: PRODUCT USED FOR UNKNOWN INDICATION
     Dosage: 10 MG, DAILY
     Route: 065
     Dates: start: 20171220
  11. AMBRISENTAN [Suspect]
     Active Substance: AMBRISENTAN
     Dosage: 10 MG, DAILY
     Route: 065
     Dates: start: 20180108
  12. UPTRAVI [Suspect]
     Active Substance: SELEXIPAG
     Dosage: UNK UNK, UNKNOWN
     Route: 065
  13. IMODIUM [Concomitant]
     Active Substance: LOPERAMIDE HYDROCHLORIDE
     Indication: DIARRHOEA
     Dosage: UNK UNK, UNKNOWN
     Route: 065

REACTIONS (33)
  - Procedural pain [Not Recovered/Not Resolved]
  - Blood creatinine increased [Unknown]
  - Retching [Not Recovered/Not Resolved]
  - Pain in extremity [Not Recovered/Not Resolved]
  - Blood pressure decreased [Unknown]
  - Scleroderma [Not Recovered/Not Resolved]
  - Diarrhoea [Recovering/Resolving]
  - Flushing [Unknown]
  - Headache [Unknown]
  - Pulmonary hypertension [Not Recovered/Not Resolved]
  - Coeliac disease [Not Recovered/Not Resolved]
  - Pneumonitis [Unknown]
  - Productive cough [Not Recovered/Not Resolved]
  - Cough [Not Recovered/Not Resolved]
  - Abdominal distension [Unknown]
  - Oedema [Unknown]
  - Back pain [Not Recovered/Not Resolved]
  - Nausea [Not Recovered/Not Resolved]
  - Wrong technique in product usage process [Unknown]
  - Weight increased [Unknown]
  - Sleep apnoea syndrome [Recovering/Resolving]
  - Decreased appetite [Not Recovered/Not Resolved]
  - Dyspnoea [Not Recovered/Not Resolved]
  - Bronchitis [Unknown]
  - Fluid retention [Recovered/Resolved]
  - Chills [Not Recovered/Not Resolved]
  - Pruritus [Unknown]
  - Dyspepsia [Not Recovered/Not Resolved]
  - Vomiting [Recovered/Resolved]
  - Anaemia [Not Recovered/Not Resolved]
  - Chest pain [Not Recovered/Not Resolved]
  - Peripheral swelling [Unknown]
  - Myalgia [Not Recovered/Not Resolved]

NARRATIVE: CASE EVENT DATE: 20180328
